FAERS Safety Report 6609278-7 (Version None)
Quarter: 2010Q1

REPORT INFORMATION
  Report Type: 
  Country: None (occurrence: None)
  Receive Date: 20100224
  Receipt Date: 20100218
  Transmission Date: 20100710
  Serious: Yes (Death, Hospitalization, Other)
  Sender: FDA-Public Use
  Company Number: 2010US000543

PATIENT
  Age: 68 Year
  Sex: Male

DRUGS (6)
  1. PROGRAF [Suspect]
     Indication: RENAL TRANSPLANT
  2. CORTICOSTEROIDS () [Suspect]
     Indication: RENAL TRANSPLANT
     Dosage: IV NOS
     Route: 042
  3. ANTI-THYMOCYTE GLOBULIN NOS [Suspect]
     Indication: RENAL TRANSPLANT
  4. MYCOPHENOLATE MOFETIL [Suspect]
     Indication: RENAL TRANSPLANT
  5. TRIMETHOPRIM + SULFAMETHOXAZOLE [Concomitant]
  6. VALGANCICLOVIR HCL [Concomitant]

REACTIONS (6)
  - ACUTE RESPIRATORY DISTRESS SYNDROME [None]
  - H1N1 INFLUENZA [None]
  - LYMPHOCYTE PERCENTAGE DECREASED [None]
  - MULTI-ORGAN FAILURE [None]
  - NEUROLOGICAL DECOMPENSATION [None]
  - NEUTROPHIL PERCENTAGE INCREASED [None]
